FAERS Safety Report 10607228 (Version 2)
Quarter: 2014Q4

REPORT INFORMATION
  Report Type: Spontaneous
  Country: US (occurrence: US)
  Receive Date: 20141125
  Receipt Date: 20141218
  Transmission Date: 20150529
  Serious: No
  Sender: FDA-Public Use
  Company Number: US-BAYER-2014-173043

PATIENT
  Age: 39 Year
  Sex: Female

DRUGS (2)
  1. MIRENA [Suspect]
     Active Substance: LEVONORGESTREL
     Dosage: 20 MCG/24HR, CONT
     Route: 015
     Dates: start: 20121217, end: 2014
  2. MIRENA [Suspect]
     Active Substance: LEVONORGESTREL
     Dosage: 20 MCG/24HR, CONT
     Route: 015
     Dates: start: 20121119, end: 20121120

REACTIONS (5)
  - Menstruation irregular [None]
  - Drug ineffective [None]
  - Device expulsion [None]
  - Device expulsion [None]
  - Pregnancy with contraceptive device [None]

NARRATIVE: CASE EVENT DATE: 20121120
